FAERS Safety Report 4427527-0 (Version None)
Quarter: 2004Q3

REPORT INFORMATION
  Report Type: 
  Country: None (occurrence: None)
  Receive Date: 20040812
  Receipt Date: 20040728
  Transmission Date: 20050211
  Serious: Yes (Hospitalization)
  Sender: FDA-Public Use
  Company Number: 2004-03402

PATIENT
  Age: 52 Year
  Sex: Female
  Weight: 91 kg

DRUGS (13)
  1. METOCLOPRAMIDE [Suspect]
     Indication: GASTROINTESTINAL MOTILITY DISORDER
     Dosage: 10 MG, QID, ORAL : 20 MG, QID, ORAL : 20 MG QAC, QHS
     Route: 048
  2. METOCLOPRAMIDE [Suspect]
     Indication: GASTROINTESTINAL MOTILITY DISORDER
     Dosage: 10 MG, QID, ORAL : 20 MG, QID, ORAL : 20 MG QAC, QHS
     Route: 048
  3. TACROLIMUS(TACROLIMUS) [Suspect]
     Indication: IMMUNOSUPPRESSION
     Dosage: 28 MG, BID, ORAL   : 20 MG, BID
     Route: 048
  4. CIMETIDINE [Concomitant]
  5. KETOCONAZOLE [Concomitant]
  6. MYCOPHENOLATE MOFETIL [Concomitant]
  7. ONDANSETRON [Concomitant]
  8. URSODIOL (URSODEOXYCHOLIC ACID) [Concomitant]
  9. LEVOFLOXACIN [Concomitant]
  10. METRONIDAZOLE [Concomitant]
  11. RANITIDINE [Concomitant]
  12. OMEPRAZOLE SODIUM [Concomitant]
  13. PROTONIX ^WYETH-AYERS^ (PANTOPRAZOLE SODIUM) [Concomitant]

REACTIONS (3)
  - DRUG INTERACTION [None]
  - DRUG LEVEL INCREASED [None]
  - DRUG TOXICITY [None]
